FAERS Safety Report 8925261 (Version 1)
Quarter: 2012Q4

REPORT INFORMATION
  Report Type: 
  Country: DE (occurrence: DE)
  Receive Date: 20121126
  Receipt Date: 20121126
  Transmission Date: 20130627
  Serious: Yes (Hospitalization)
  Sender: FDA-Public Use
  Company Number: DE-PFIZER INC-2012292434

PATIENT
  Age: 73 Year
  Sex: Male
  Weight: 83.6 kg

DRUGS (4)
  1. GENOTROPIN [Suspect]
     Dosage: 0.2 mg, 1x/day,7 injections per week
     Route: 058
     Dates: start: 20020828
  2. TESTOSTERONE [Concomitant]
     Indication: TESTICULAR HYPOGONADISM
     Dosage: UNK
     Dates: start: 20020828
  3. TESTOSTERONE [Concomitant]
     Indication: LUTEINIZING HORMONE DEFICIENCY
  4. TESTOSTERONE [Concomitant]
     Indication: FOLLICLE-STIMULATING HORMONE DEFICIENCY

REACTIONS (1)
  - Gallbladder disorder [Unknown]
